FAERS Safety Report 10664060 (Version 3)
Quarter: 2015Q1

REPORT INFORMATION
  Report Type: Report from Study
  Country: US (occurrence: None)
  Receive Date: 20141217
  Receipt Date: 20150123
  Transmission Date: 20150720
  Serious: Yes (Hospitalization)
  Sender: FDA-Public Use
  Company Number: AEGR000983

PATIENT
  Age: 55 Year
  Sex: Female
  Weight: 91.6 kg

DRUGS (24)
  1. PRADAXA [Concomitant]
     Active Substance: DABIGATRAN ETEXILATE MESYLATE
  2. PERCOCET (OXYCODONE HYDROCHLORIDE, OXYCODONE TEREPHTHALATE, PARACETAMOL) [Concomitant]
  3. COREG [Concomitant]
     Active Substance: CARVEDILOL
  4. PYRIDIUM (PHENAZOPYRIDINE HYDROCHLORIDE) [Concomitant]
  5. DESYREL [Concomitant]
     Active Substance: TRAZODONE HYDROCHLORIDE
  6. HUMULIN R (INSULIN HUMAN) [Concomitant]
  7. ZAROXOLYN (METOLAZONE) [Concomitant]
  8. VITAMIN D (COLECALCIFEROL) [Concomitant]
  9. DEPAKOTE [Concomitant]
     Active Substance: DIVALPROEX SODIUM
  10. CYMBALTA [Concomitant]
     Active Substance: DULOXETINE HYDROCHLORIDE
  11. NORVASC [Concomitant]
     Active Substance: AMLODIPINE BESYLATE
  12. KLONOPIN [Concomitant]
     Active Substance: CLONAZEPAM
  13. LASIX [Concomitant]
     Active Substance: FUROSEMIDE
  14. GEODON [Concomitant]
     Active Substance: ZIPRASIDONE HYDROCHLORIDE\ZIPRASIDONE MESYLATE
  15. LANTUS [Concomitant]
     Active Substance: INSULIN GLARGINE
  16. VITAMIN E (TOCOPHERYL ACETATE) [Concomitant]
  17. HUMALOG [Concomitant]
     Active Substance: INSULIN LISPRO
  18. ASPIRIN (ACETYLSALICYLIC ACID) [Concomitant]
     Active Substance: ASPIRIN
  19. ZANAFLEX [Concomitant]
     Active Substance: TIZANIDINE HYDROCHLORIDE
  20. JUXTAPID [Suspect]
     Active Substance: LOMITAPIDE MESYLATE
     Indication: TYPE IIA HYPERLIPIDAEMIA
     Route: 048
     Dates: start: 20141124, end: 20141205
  21. CRESTOR [Concomitant]
     Active Substance: ROSUVASTATIN CALCIUM
  22. HYDRALAZINE (HYDRALAZINE HYDROCHLORIDE) [Concomitant]
  23. LOVENOX [Concomitant]
     Active Substance: ENOXAPARIN SODIUM
  24. PRILOSEC (OMEPRAZOLE) [Concomitant]
     Active Substance: OMEPRAZOLE MAGNESIUM

REACTIONS (10)
  - Depression [None]
  - Abasia [None]
  - Therapy cessation [None]
  - Anxiety disorder [None]
  - Cardiac failure congestive [None]
  - Orthostatic hypotension [None]
  - Renal failure [None]
  - Weight increased [None]
  - Chest pain [None]
  - Muscular weakness [None]

NARRATIVE: CASE EVENT DATE: 2014
